FAERS Safety Report 8279258-7 (Version None)
Quarter: 2012Q2

REPORT INFORMATION
  Report Type: 
  Country: None (occurrence: None)
  Receive Date: 20120412
  Receipt Date: 20110712
  Transmission Date: 20120825
  Serious: No
  Sender: FDA-Public Use
  Company Number: US-ASTRAZENECA-2011SE42042

PATIENT
  Age: 56 Year
  Sex: Female

DRUGS (3)
  1. NEXIUM [Suspect]
     Route: 048
  2. HRT [Concomitant]
  3. CYMBALTA [Concomitant]

REACTIONS (5)
  - TREMOR [None]
  - FATIGUE [None]
  - DRUG DOSE OMISSION [None]
  - LETHARGY [None]
  - ABDOMINAL DISCOMFORT [None]
